FAERS Safety Report 4311244-1 (Version None)
Quarter: 2004Q1

REPORT INFORMATION
  Report Type: 
  Country: None (occurrence: None)
  Receive Date: 20040304
  Receipt Date: 20040209
  Transmission Date: 20041129
  Serious: Yes (Hospitalization)
  Sender: FDA-Public Use
  Company Number: WAES 0402USA00906

PATIENT

DRUGS (1)
  1. STROMECTOL [Suspect]
     Route: 048
     Dates: start: 20031125, end: 20031125

REACTIONS (1)
  - COMA [None]
